FAERS Safety Report 21412295 (Version 1)
Quarter: 2022Q4

REPORT INFORMATION
  Report Type: Spontaneous
  Country: US (occurrence: US)
  Receive Date: 20221005
  Receipt Date: 20221005
  Transmission Date: 20230113
  Serious: No
  Sender: FDA-Public Use
  Company Number: US-Santen Inc-2022-USA-005596

PATIENT
  Sex: Female

DRUGS (2)
  1. VERKAZIA [Suspect]
     Active Substance: CYCLOSPORINE
     Indication: Product used for unknown indication
     Dosage: FOUR TIMES DAILY
     Route: 047
     Dates: start: 20220822
  2. VERKAZIA [Suspect]
     Active Substance: CYCLOSPORINE
     Dosage: ONCE IN THE MORNING AND ONCE IN THE EVENING
     Route: 047

REACTIONS (1)
  - Ocular hyperaemia [Unknown]
